FAERS Safety Report 7237108-1 (Version None)
Quarter: 2011Q1

REPORT INFORMATION
  Report Type: 
  Country: None (occurrence: None)
  Receive Date: 20110121
  Receipt Date: 20110113
  Transmission Date: 20110831
  Serious: Yes (Hospitalization)
  Sender: FDA-Public Use
  Company Number: US-ASTRAZENECA-2011SE02450

PATIENT
  Age: 57 Year
  Sex: Male
  Weight: 85.3 kg

DRUGS (18)
  1. ASPIRIN [Concomitant]
     Dates: start: 20020201
  2. GABAPENTIN [Concomitant]
     Indication: NEURALGIA
     Dosage: 600 MG TO 24OO MG
     Route: 048
     Dates: start: 20020101, end: 20060125
  3. CITALOPRAM HYDROBROMIDE [Concomitant]
     Indication: DEPRESSION
     Dosage: 40 MG TAKE ONE-HALF TABLET BY MOUTH DAILY AT BEDTIME
     Route: 048
     Dates: start: 20051222, end: 20060117
  4. TOPAMAX [Concomitant]
     Route: 048
     Dates: start: 20060117, end: 20060308
  5. PENTOXIFYLLINE [Concomitant]
     Dates: start: 20020101
  6. ZOCOR [Concomitant]
     Dates: start: 20020101
  7. ACE INHIBITOR [Concomitant]
     Indication: BLOOD PRESSURE
     Dates: start: 20020101
  8. MULTI-VITAMINS [Concomitant]
     Dates: start: 20020201
  9. HEMOFIL [Concomitant]
     Dates: start: 20020201
  10. SEROQUEL [Suspect]
     Indication: SLEEP DISORDER
     Dosage: 25 MG TO 600 MG
     Route: 048
     Dates: start: 20010426, end: 20060422
  11. CLONAZEPAM [Concomitant]
     Route: 048
     Dates: start: 20020329, end: 20020506
  12. ADALAT [Concomitant]
     Dosage: CC QD
     Dates: start: 20020101
  13. LITHIUM [Concomitant]
     Dates: start: 20020101
  14. MONOPRIL [Concomitant]
     Dates: start: 20020101
  15. GABAPENTIN [Concomitant]
     Indication: CONVULSION
     Dosage: 600 MG TO 24OO MG
     Route: 048
     Dates: start: 20020101, end: 20060125
  16. LORAZEPAM [Concomitant]
     Indication: ANXIETY
     Dosage: 0.5 MG TO 3 MG
     Route: 048
     Dates: start: 20020101, end: 20060125
  17. CALCIUM CHANNEL BLOCKER [Concomitant]
     Indication: BLOOD PRESSURE
     Dates: start: 20020101
  18. TRIETHANOLAMINE POLYPEPTIDE [Concomitant]
     Dosage: OTIC LIQ 2 DROP(S) AU QD, INSTILL 2 DROPS IN EACH EAR EVERY DAY
     Route: 001
     Dates: start: 20010821, end: 20010920

REACTIONS (16)
  - HYPERLIPIDAEMIA [None]
  - SCHIZOPHRENIA [None]
  - SPINAL OSTEOARTHRITIS [None]
  - HYPERMETROPIA [None]
  - DEPRESSION [None]
  - ASTIGMATISM [None]
  - HYPERTENSION [None]
  - DIABETES MELLITUS [None]
  - ACIDOSIS [None]
  - VISION BLURRED [None]
  - ARTERIOSCLEROSIS [None]
  - HYPEROSMOLAR STATE [None]
  - BIPOLAR DISORDER [None]
  - TYPE 2 DIABETES MELLITUS [None]
  - PRESBYOPIA [None]
  - CATARACT [None]
